FAERS Safety Report 9339285 (Version 1)
Quarter: 2013Q2

REPORT INFORMATION
  Report Type: Spontaneous
  Country: GB (occurrence: GB)
  Receive Date: 20130610
  Receipt Date: 20130610
  Transmission Date: 20140414
  Serious: Yes (Other)
  Sender: FDA-Public Use
  Company Number: GB-SANOFI-AVENTIS-2013SA053975

PATIENT
  Age: 63 Year
  Sex: Female
  Weight: 70 kg

DRUGS (4)
  1. MULTAQ [Suspect]
     Indication: ATRIAL FIBRILLATION
     Route: 048
     Dates: start: 201211
  2. ADIZEM-XL [Concomitant]
     Indication: ATRIAL FIBRILLATION
     Route: 065
  3. LEVOTHYROXINE [Concomitant]
     Indication: HYPOTHYROIDISM
     Route: 065
  4. XALATAN [Concomitant]
     Indication: GLAUCOMA
     Dosage: 1 DROP AT NIGHT.
     Route: 065

REACTIONS (1)
  - Alanine aminotransferase increased [Unknown]
